FAERS Safety Report 9812679 (Version 12)
Quarter: 2016Q1

REPORT INFORMATION
  Report Type: Report from Study
  Country: ES (occurrence: ES)
  Receive Date: 20140113
  Receipt Date: 20160202
  Transmission Date: 20160526
  Serious: Yes (Hospitalization)
  Sender: FDA-Public Use
  Company Number: ES-ROCHE-1331406

PATIENT
  Age: 45 Year
  Sex: Female
  Weight: 113 kg

DRUGS (7)
  1. TOCILIZUMAB [Suspect]
     Active Substance: TOCILIZUMAB
     Indication: RHEUMATOID ARTHRITIS
     Dosage: DATE OF LAST DOSE PRIOR TO SAE: 25/DEC/2013, DOSE WAS TEMPORARILY INTERRUPTED
     Route: 058
     Dates: start: 20131204, end: 20131229
  2. TOCILIZUMAB [Suspect]
     Active Substance: TOCILIZUMAB
     Route: 058
     Dates: end: 20141029
  3. FOLIC ACID. [Concomitant]
     Active Substance: FOLIC ACID
     Route: 065
     Dates: start: 20131008
  4. OMEPRAZOLE. [Concomitant]
     Active Substance: OMEPRAZOLE
     Route: 065
     Dates: start: 20060420
  5. METHOTREXATE [Concomitant]
     Active Substance: METHOTREXATE
     Route: 065
     Dates: start: 20131008, end: 20140526
  6. INDOMETACINE [Concomitant]
     Active Substance: INDOMETHACIN
     Route: 065
     Dates: start: 20130925
  7. INDOMETACINE [Concomitant]
     Active Substance: INDOMETHACIN
     Route: 065

REACTIONS (2)
  - Thrombophlebitis [Recovered/Resolved]
  - Pulmonary embolism [Recovered/Resolved]

NARRATIVE: CASE EVENT DATE: 20131229
